FAERS Safety Report 8009447-8 (Version None)
Quarter: 2011Q4

REPORT INFORMATION
  Report Type: 
  Country: None (occurrence: None)
  Receive Date: 20111227
  Receipt Date: 20111213
  Transmission Date: 20120403
  Serious: Yes (Other)
  Sender: FDA-Public Use
  Company Number: MX-SANOFI-AVENTIS-2011SA081879

PATIENT
  Age: 47 Year
  Sex: Female
  Weight: 62 kg

DRUGS (4)
  1. LEVOTHYROXINE SODIUM [Concomitant]
     Indication: SECONDARY HYPOTHYROIDISM
     Route: 048
     Dates: start: 19850101
  2. METFORMIN [Concomitant]
     Indication: TYPE 2 DIABETES MELLITUS
     Route: 048
     Dates: start: 20100101
  3. LANTUS [Suspect]
     Indication: TYPE 2 DIABETES MELLITUS
     Route: 058
     Dates: start: 20100101, end: 20110901
  4. LANTUS [Suspect]
     Route: 058
     Dates: start: 20110901

REACTIONS (7)
  - CATARACT [None]
  - EYE PRURITUS [None]
  - WEIGHT DECREASED [None]
  - FUNGAL INFECTION [None]
  - LACRIMATION INCREASED [None]
  - CONJUNCTIVITIS ALLERGIC [None]
  - HYPERGLYCAEMIA [None]
